FAERS Safety Report 12810407 (Version 1)
Quarter: 2016Q4

REPORT INFORMATION
  Report Type: Spontaneous
  Country: US (occurrence: US)
  Receive Date: 20161005
  Receipt Date: 20161005
  Transmission Date: 20170207
  Serious: No
  Sender: FDA-Public Use
  Company Number: US-TEVA-695702USA

PATIENT
  Sex: Female

DRUGS (1)
  1. COPAXONE [Suspect]
     Active Substance: GLATIRAMER ACETATE
     Dosage: FORM STRENGTH: UNKNOWN

REACTIONS (7)
  - Contusion [Unknown]
  - Pain in extremity [Unknown]
  - Injection site pain [Unknown]
  - Urticaria [Unknown]
  - Arthralgia [Unknown]
  - Abdominal distension [Unknown]
  - Peripheral swelling [Unknown]
